FAERS Safety Report 15831801 (Version 1)
Quarter: 2019Q1

REPORT INFORMATION
  Report Type: Other
  Country: IT (occurrence: IT)
  Receive Date: 20190116
  Receipt Date: 20190116
  Transmission Date: 20190417
  Serious: Yes (Other)
  Sender: FDA-Public Use
  Company Number: IT-ACCORD-102380

PATIENT
  Age: 66 Year
  Sex: Female

DRUGS (2)
  1. NALTREXONE/NALTREXONE HYDROCHLORIDE [Suspect]
     Active Substance: NALTREXONE
     Indication: HYPERTENSION
     Route: 048
     Dates: start: 20180101, end: 20180522
  2. PERINDOPRIL/PERINDOPRIL ERBUMINE [Concomitant]

REACTIONS (2)
  - Off label use [Unknown]
  - Bradycardia [Recovering/Resolving]

NARRATIVE: CASE EVENT DATE: 20180522
